FAERS Safety Report 9969357 (Version 2)
Quarter: 2014Q2

REPORT INFORMATION
  Report Type: Spontaneous
  Country: JP (occurrence: JP)
  Receive Date: 20140306
  Receipt Date: 20140404
  Transmission Date: 20141212
  Serious: Yes (Other)
  Sender: FDA-Public Use
  Company Number: JP-ROCHE-1357857

PATIENT
  Age: 10 Year
  Sex: Female

DRUGS (1)
  1. CELLCEPT [Suspect]
     Indication: NEPHROTIC SYNDROME
     Dosage: DOSAGE IS UNCERTAIN.
     Route: 048

REACTIONS (2)
  - Encephalopathy [Unknown]
  - Off label use [Unknown]
